FAERS Safety Report 9306433 (Version 5)
Quarter: 2014Q3

REPORT INFORMATION
  Report Type: Spontaneous
  Country: US (occurrence: US)
  Receive Date: 20130523
  Receipt Date: 20140805
  Transmission Date: 20150326
  Serious: No
  Sender: FDA-Public Use
  Company Number: US-009507513-1305USA013019

PATIENT
  Sex: Male
  Weight: 80.73 kg

DRUGS (3)
  1. PROPECIA [Suspect]
     Active Substance: FINASTERIDE
     Indication: ALOPECIA
     Dosage: 1 MG, QD
     Route: 048
     Dates: start: 19980203, end: 20080729
  2. PROPECIA [Suspect]
     Active Substance: FINASTERIDE
     Indication: ANDROGENETIC ALOPECIA
     Dosage: 1 MG, QD
     Route: 048
     Dates: start: 20081108, end: 201207
  3. PROSCAR [Suspect]
     Active Substance: FINASTERIDE
     Indication: ANDROGENETIC ALOPECIA
     Dosage: 5 MG, QD
     Route: 048
     Dates: start: 20080229

REACTIONS (20)
  - Rhinoplasty [Unknown]
  - Hormone level abnormal [Unknown]
  - Benign prostatic hyperplasia [Unknown]
  - Sexual dysfunction [Not Recovered/Not Resolved]
  - Testicular failure [Unknown]
  - Blood testosterone decreased [Unknown]
  - Back pain [Unknown]
  - Erectile dysfunction [Not Recovered/Not Resolved]
  - Groin pain [Unknown]
  - Drug administration error [Unknown]
  - Libido decreased [Not Recovered/Not Resolved]
  - Penis disorder [Unknown]
  - Brain injury [Unknown]
  - Soft tissue injury [Unknown]
  - Rhinoplasty [Unknown]
  - Fatigue [Unknown]
  - Limb operation [Unknown]
  - Blood pressure increased [Unknown]
  - Vitamin D deficiency [Unknown]
  - Breast enlargement [Unknown]

NARRATIVE: CASE EVENT DATE: 1998
